FAERS Safety Report 6522065-3 (Version None)
Quarter: 2009Q4

REPORT INFORMATION
  Report Type: 
  Country: None (occurrence: None)
  Receive Date: 20091229
  Receipt Date: 20091229
  Transmission Date: 20100525
  Serious: Yes (Hospitalization)
  Sender: FDA-Public Use
  Company Number: None

PATIENT
  Age: 33 Year
  Sex: Female

DRUGS (5)
  1. PHENYTOIN [Suspect]
     Indication: CONVULSION
     Dosage: 200 MG PO Q 12 H
  2. TOPIRAMATE [Concomitant]
  3. GABAPENTIN [Concomitant]
  4. LEVITIRACETAM [Concomitant]
  5. PAROXETINE [Concomitant]

REACTIONS (6)
  - ASTHENIA [None]
  - BALANCE DISORDER [None]
  - CREATININE RENAL CLEARANCE DECREASED [None]
  - DIPLOPIA [None]
  - NYSTAGMUS [None]
  - THERAPEUTIC AGENT TOXICITY [None]
